FAERS Safety Report 5339241-8 (Version None)
Quarter: 2007Q2

REPORT INFORMATION
  Report Type: 
  Country: None (occurrence: None)
  Receive Date: 20070329
  Receipt Date: 20070219
  Transmission Date: 20071010
  Serious: Yes (Other)
  Sender: FDA-Public Use
  Company Number: A03200701456

PATIENT
  Age: 76 Year
  Sex: Male

DRUGS (13)
  1. AMBIEN [Suspect]
     Indication: INSOMNIA
     Dosage: 12.5 MG ONCE - ORAL
     Route: 048
     Dates: start: 20070215, end: 20070216
  2. VALSARTAN [Concomitant]
  3. AMLODIPINE BESYLATE [Concomitant]
  4. SOTALOL HYDROCHLORIDE [Concomitant]
  5. CLONIDINE [Concomitant]
  6. OMEPRAZOLE [Concomitant]
  7. TERAZOSIN HYDROCHLORIDE [Concomitant]
  8. FUROSEMIDE [Concomitant]
  9. WARFARIN SODIUM [Concomitant]
  10. POTASSIUM ACETATE [Concomitant]
  11. FOLIC ACID [Concomitant]
  12. CALCIUM CHLORIDE [Concomitant]
  13. MULTIVITAMIN [Concomitant]

REACTIONS (3)
  - FALL [None]
  - HALLUCINATION, AUDITORY [None]
  - SLEEP WALKING [None]
